FAERS Safety Report 16868007 (Version 1)
Quarter: 2019Q3

REPORT INFORMATION
  Report Type: Spontaneous
  Country: JP (occurrence: JP)
  Receive Date: 20190930
  Receipt Date: 20190930
  Transmission Date: 20191005
  Serious: Yes (Other)
  Sender: FDA-Public Use
  Company Number: JP-PFIZER INC-2019404630

PATIENT
  Age: 27 Year
  Sex: Female
  Weight: 51.5 kg

DRUGS (2)
  1. METHYLPREDNISOLONE SODIUM SUCCINATE. [Suspect]
     Active Substance: METHYLPREDNISOLONE SODIUM SUCCINATE
     Indication: VASCULITIS
     Dosage: 1000 MG, DAILY
  2. TACROLIMUS. [Suspect]
     Active Substance: TACROLIMUS
     Indication: VASCULITIS
     Dosage: UNK

REACTIONS (2)
  - Posterior reversible encephalopathy syndrome [Recovering/Resolving]
  - Drug ineffective [Unknown]
